FAERS Safety Report 15603237 (Version 1)
Quarter: 2018Q4

REPORT INFORMATION
  Report Type: Report from Study
  Country: US (occurrence: US)
  Receive Date: 20181109
  Receipt Date: 20181109
  Transmission Date: 20190205
  Serious: Yes (Other)
  Sender: FDA-Public Use
  Company Number: US-JNJFOC-20181045971

PATIENT

DRUGS (1)
  1. INFLIXIMAB, RECOMBINANT [Suspect]
     Active Substance: INFLIXIMAB
     Indication: AUTOIMMUNE COLITIS
     Route: 042

REACTIONS (4)
  - Cytomegalovirus viraemia [Unknown]
  - Herpes virus infection [Unknown]
  - Off label use [Unknown]
  - Product use in unapproved indication [Unknown]
